FAERS Safety Report 5051776-4 (Version None)
Quarter: 2006Q3

REPORT INFORMATION
  Report Type: 
  Country: None (occurrence: None)
  Receive Date: 20060712
  Receipt Date: 20060712
  Transmission Date: 20061208
  Serious: Yes (Other)
  Sender: FDA-Public Use
  Company Number: None

PATIENT
  Age: 76 Year
  Sex: Male
  Weight: 87.5 kg

DRUGS (8)
  1. TERAZOSIN HCL [Suspect]
  2. FINASTERIDE [Concomitant]
  3. CLOPIDOGREL BISULFATE [Concomitant]
  4. OMEPRAZOLE [Concomitant]
  5. RAMIPRIL [Concomitant]
  6. SULINDAC [Concomitant]
  7. METOPROLOL TARTRATE [Concomitant]
  8. CILOSTAZOL [Concomitant]

REACTIONS (1)
  - BLOOD PRESSURE DECREASED [None]
